FAERS Safety Report 18107655 (Version 1)
Quarter: 2020Q3

REPORT INFORMATION
  Report Type: Spontaneous
  Country: US (occurrence: US)
  Receive Date: 20200804
  Receipt Date: 20200804
  Transmission Date: 20201103
  Serious: Yes (Hospitalization, Other)
  Sender: FDA-Public Use
  Company Number: US-PFIZER INC-2020293263

PATIENT
  Age: 52 Year
  Sex: Female
  Weight: 124.72 kg

DRUGS (4)
  1. IBRANCE [Suspect]
     Active Substance: PALBOCICLIB
     Indication: BREAST CANCER FEMALE
     Dosage: 125 MG, CYCLIC (3 WEEKS ON, 1 WEEK OFF)
     Route: 048
     Dates: start: 202001
  2. LETROZOLE. [Concomitant]
     Active Substance: LETROZOLE
     Dosage: UNK
  3. OMEPRAZOLE. [Concomitant]
     Active Substance: OMEPRAZOLE
     Dosage: UNK
  4. VENLAFAXINE HCL [Concomitant]
     Active Substance: VENLAFAXINE HYDROCHLORIDE
     Dosage: UNK

REACTIONS (10)
  - Arthralgia [Unknown]
  - Limb discomfort [Unknown]
  - Alopecia [Unknown]
  - Peripheral swelling [Unknown]
  - Thrombosis [Unknown]
  - Nail disorder [Unknown]
  - Stomatitis [Recovered/Resolved]
  - Fatigue [Unknown]
  - Diarrhoea [Unknown]
  - Vitamin D decreased [Unknown]

NARRATIVE: CASE EVENT DATE: 2020
